FAERS Safety Report 10468063 (Version 1)
Quarter: 2014Q3

REPORT INFORMATION
  Report Type: Spontaneous
  Country: FR (occurrence: FR)
  Receive Date: 20140922
  Receipt Date: 20140922
  Transmission Date: 20150326
  Serious: Yes (Death, Hospitalization, Other)
  Sender: FDA-Public Use
  Company Number: FR-PFIZER INC-2014256649

PATIENT
  Age: 49 Year
  Sex: Male

DRUGS (4)
  1. METRONIDAZOLE ^BRAUN^ [Suspect]
     Active Substance: METRONIDAZOLE
     Dosage: UNK
     Route: 042
     Dates: start: 20140711, end: 20140718
  2. ROVALCYTE [Suspect]
     Active Substance: VALGANCICLOVIR HYDROCHLORIDE
     Dosage: UNK
     Route: 042
     Dates: start: 20140707, end: 20140717
  3. TIENAM [Suspect]
     Active Substance: CILASTATIN SODIUM\IMIPENEM
     Dosage: UNK
     Route: 042
     Dates: start: 20140713, end: 20140719
  4. TAHOR [Suspect]
     Active Substance: ATORVASTATIN CALCIUM
     Dosage: 80 MG, 1X/DAY
     Route: 048
     Dates: start: 20140710, end: 20140728

REACTIONS (6)
  - Hepatocellular injury [Unknown]
  - Toxic skin eruption [Not Recovered/Not Resolved]
  - Blood creatinine increased [Unknown]
  - Cholestasis [Unknown]
  - Multi-organ failure [Fatal]
  - Eosinophilia [Not Recovered/Not Resolved]

NARRATIVE: CASE EVENT DATE: 2014
